FAERS Safety Report 19459133 (Version 2)
Quarter: 2021Q3

REPORT INFORMATION
  Report Type: Other
  Country: US (occurrence: US)
  Receive Date: 20210624
  Receipt Date: 20210730
  Transmission Date: 20211014
  Serious: No
  Sender: FDA-Public Use
  Company Number: US-ROCHE-2391268

PATIENT
  Age: 36 Year
  Sex: Female
  Weight: 62.2 kg

DRUGS (1)
  1. OCREVUS [Suspect]
     Active Substance: OCRELIZUMAB
     Indication: RELAPSING MULTIPLE SCLEROSIS
     Route: 042
     Dates: start: 201711, end: 20201013

REACTIONS (3)
  - Off label use [Unknown]
  - Oral infection [Recovering/Resolving]
  - JC polyomavirus test positive [Unknown]

NARRATIVE: CASE EVENT DATE: 201711
